FAERS Safety Report 8589185-3 (Version None)
Quarter: 2012Q3

REPORT INFORMATION
  Report Type: 
  Country: None (occurrence: None)
  Receive Date: 20120813
  Receipt Date: 20120809
  Transmission Date: 20120928
  Serious: Yes (Death)
  Sender: FDA-Public Use
  Company Number: 2012SP002232

PATIENT
  Age: 50 Year
  Sex: Male

DRUGS (10)
  1. LATUDA [Suspect]
     Indication: SCHIZOPHRENIA
     Route: 048
     Dates: start: 20120723, end: 20120727
  2. CLOZARIL [Concomitant]
     Indication: SCHIZOPHRENIA
     Dates: start: 20120601, end: 20120716
  3. CLOZARIL [Concomitant]
     Dates: end: 20110101
  4. ALL OTHER THERAPEUTIC PRODUCTS [Concomitant]
     Indication: DERMAL CYST
     Dates: start: 20120701, end: 20120701
  5. ALL OTHER THERAPEUTIC PRODUCTS [Concomitant]
     Indication: PRODUCT USED FOR UNKNOWN INDICATION
  6. LATUDA [Suspect]
     Route: 048
     Dates: start: 20120717, end: 20120722
  7. LATUDA [Suspect]
     Indication: PSYCHIATRIC DECOMPENSATION
     Route: 048
     Dates: start: 20120723, end: 20120727
  8. LATUDA [Suspect]
     Route: 048
     Dates: start: 20120717, end: 20120722
  9. CLOZARIL [Concomitant]
     Dates: start: 20110101, end: 20120601
  10. ANTIBIOTICS [Concomitant]
     Indication: DERMAL CYST
     Dates: start: 20120701

REACTIONS (1)
  - DEATH [None]
